FAERS Safety Report 25979574 (Version 1)
Quarter: 2025Q4

REPORT INFORMATION
  Report Type: Spontaneous
  Country: US (occurrence: None)
  Receive Date: 20251030
  Receipt Date: 20251030
  Transmission Date: 20260117
  Serious: Yes (Other)
  Sender: FDA-CTU
  Company Number: None

PATIENT
  Sex: Male

DRUGS (9)
  1. VYNDAMAX [Suspect]
     Active Substance: TAFAMIDIS
     Indication: Amyloidosis
     Dosage: ? TAKE 1 CAPSULE BY MOUTH DAILY
     Route: 048
     Dates: start: 20240221
  2. D2000 ULTRA STRENGTH [Concomitant]
  3. ELIQUIS TAB SMG [Concomitant]
  4. ENALAPRIL TAB 2.5MG [Concomitant]
  5. GABAPENTIN [Concomitant]
     Active Substance: GABAPENTIN
  6. ISOSORB MONO TAB 30MG ER [Concomitant]
  7. METOPROL sue TAB 25MG ER [Concomitant]
  8. VITAMIN D [Concomitant]
     Active Substance: VITAMIN D NOS
  9. ZOCOR TAB 40MG [Concomitant]

REACTIONS (1)
  - Pleural effusion [None]
